FAERS Safety Report 21411307 (Version 1)
Quarter: 2022Q4

REPORT INFORMATION
  Report Type: Spontaneous
  Country: US (occurrence: US)
  Receive Date: 20221005
  Receipt Date: 20221005
  Transmission Date: 20230113
  Serious: No
  Sender: FDA-Public Use
  Company Number: US-TAKEDA-2022TUS070751

PATIENT
  Age: 47 Year
  Sex: Female

DRUGS (1)
  1. TAKHZYRO [Suspect]
     Active Substance: LANADELUMAB-FLYO
     Indication: Multiple system atrophy
     Dosage: UNK
     Route: 065

REACTIONS (2)
  - Vocal cord paralysis [Unknown]
  - Product use in unapproved indication [Unknown]
